FAERS Safety Report 5737347-2 (Version None)
Quarter: 2008Q2

REPORT INFORMATION
  Report Type: 
  Country: None (occurrence: None)
  Receive Date: 20080507
  Receipt Date: 20070706
  Transmission Date: 20081010
  Serious: Yes (Other)
  Sender: FDA-Public Use
  Company Number: 38765

PATIENT
  Age: 23 Year
  Sex: Female

DRUGS (3)
  1. DIPYRIDAMOLE [Suspect]
     Indication: CARDIAC STRESS TEST
     Dates: start: 20070628
  2. AMINOPHYLLINE [Concomitant]
  3. CARDIOLITE [Concomitant]

REACTIONS (1)
  - RASH [None]
